FAERS Safety Report 7288941-1 (Version None)
Quarter: 2011Q1

REPORT INFORMATION
  Report Type: 
  Country: None (occurrence: None)
  Receive Date: 20110201
  Receipt Date: 20110125
  Transmission Date: 20110831
  Serious: Yes (Other)
  Sender: FDA-Public Use
  Company Number: 2011-0004

PATIENT

DRUGS (1)
  1. RANITIDINE [Suspect]

REACTIONS (1)
  - NO ADVERSE EVENT [None]
